FAERS Safety Report 4880647-9 (Version None)
Quarter: 2006Q1

REPORT INFORMATION
  Report Type: 
  Country: None (occurrence: None)
  Receive Date: 20060113
  Receipt Date: 20050912
  Transmission Date: 20060701
  Serious: Yes (Hospitalization)
  Sender: FDA-Public Use
  Company Number: US-MERCK-0509USA01527

PATIENT
  Age: 46 Year
  Sex: Male
  Weight: 73 kg

DRUGS (4)
  1. VIOXX [Suspect]
     Indication: ANKYLOSING SPONDYLITIS
     Route: 048
     Dates: start: 20020801, end: 20040916
  2. AZULFIDINE [Concomitant]
     Route: 065
     Dates: start: 20020101, end: 20040101
  3. LIPITOR [Concomitant]
     Route: 065
     Dates: start: 19850101
  4. ZOCOR [Concomitant]
     Route: 065
     Dates: start: 19850101

REACTIONS (7)
  - CORONARY ARTERY DISEASE [None]
  - DEPRESSION [None]
  - DIZZINESS [None]
  - HYPOTENSION [None]
  - MYOCARDIAL INFARCTION [None]
  - PENILE HAEMORRHAGE [None]
  - URINARY TRACT INFECTION [None]
